FAERS Safety Report 6033177-5 (Version None)
Quarter: 2009Q1

REPORT INFORMATION
  Report Type: 
  Country: None (occurrence: None)
  Receive Date: 20090109
  Receipt Date: 20090105
  Transmission Date: 20090719
  Serious: Yes (Other)
  Sender: FDA-Public Use
  Company Number: US-MERCK-0810USA04960

PATIENT
  Age: 59 Year
  Sex: Female
  Weight: 69 kg

DRUGS (18)
  1. PRIMAXIN [Suspect]
     Indication: PSEUDOMONAS INFECTION
     Route: 042
     Dates: start: 20081001, end: 20081024
  2. ZYVOX [Concomitant]
     Route: 042
  3. BACITRACIN [Concomitant]
     Route: 065
  4. FRAGMIN [Concomitant]
     Route: 058
  5. HEPARIN [Concomitant]
     Route: 042
  6. HYDREA [Concomitant]
     Route: 048
  7. LEVAQUIN [Concomitant]
     Route: 042
  8. REGLAN [Concomitant]
     Route: 042
  9. LOPRESSOR [Concomitant]
     Route: 065
  10. BACTROBAN [Concomitant]
     Route: 065
  11. PROTONIX [Concomitant]
     Route: 065
  12. POTASSIUM (UNSPECIFIED) [Concomitant]
     Route: 065
  13. COMBIVENT [Concomitant]
     Route: 065
  14. TYLENOL (CAPLET) [Concomitant]
     Indication: PAIN
     Route: 065
  15. TYLENOL (CAPLET) [Concomitant]
     Indication: BODY TEMPERATURE INCREASED
     Route: 065
  16. MORPHINE [Concomitant]
     Indication: PAIN
     Route: 065
  17. SODIUM CHLORIDE [Concomitant]
     Route: 042
  18. SODIUM CHLORIDE [Concomitant]
     Route: 065

REACTIONS (5)
  - CEREBRAL ATROPHY [None]
  - CEREBRAL DISORDER [None]
  - CEREBRAL INFARCTION [None]
  - CONVULSION [None]
  - RENAL IMPAIRMENT [None]
